FAERS Safety Report 12947365 (Version 3)
Quarter: 2020Q1

REPORT INFORMATION
  Report Type: Spontaneous
  Country: CO (occurrence: CO)
  Receive Date: 20161116
  Receipt Date: 20200226
  Transmission Date: 20200409
  Serious: Yes (Hospitalization, Other)
  Sender: FDA-Public Use
  Company Number: CO-PFIZER INC-2016528109

PATIENT
  Age: 56 Year
  Sex: Female

DRUGS (2)
  1. BESITRAN [Concomitant]
     Active Substance: SERTRALINE HYDROCHLORIDE
     Indication: DEPRESSION
  2. ZOLOFT [Suspect]
     Active Substance: SERTRALINE HYDROCHLORIDE
     Indication: DEPRESSION
     Dosage: 100 MG, 1X/DAY
     Dates: start: 2010

REACTIONS (37)
  - Erosive oesophagitis [Not Recovered/Not Resolved]
  - Laryngeal injury [Unknown]
  - Cerebrovascular accident [Unknown]
  - Asthma [Unknown]
  - Sleep disorder [Unknown]
  - Reflux laryngitis [Not Recovered/Not Resolved]
  - Hiatus hernia [Not Recovered/Not Resolved]
  - Condition aggravated [Unknown]
  - Gastritis erosive [Not Recovered/Not Resolved]
  - Transient ischaemic attack [Unknown]
  - Rheumatoid arthritis [Unknown]
  - Gastrooesophageal reflux disease [Unknown]
  - Aphasia [Unknown]
  - Cough [Unknown]
  - Dyslipidaemia [Unknown]
  - Bronchitis [Unknown]
  - Malaise [Unknown]
  - Irritable bowel syndrome [Unknown]
  - Ear discomfort [Not Recovered/Not Resolved]
  - Dysphonia [Recovered/Resolved]
  - Osteoarthritis [Unknown]
  - Abdominal pain [Unknown]
  - Chronic gastritis [Unknown]
  - Pharyngeal inflammation [Not Recovered/Not Resolved]
  - Nasal pruritus [Unknown]
  - Cerebrovascular disorder [Unknown]
  - Gastroenteritis [Unknown]
  - Intentional product misuse [Unknown]
  - Choking sensation [Unknown]
  - Condition aggravated [Not Recovered/Not Resolved]
  - Respiratory distress [Unknown]
  - Headache [Unknown]
  - Urinary incontinence [Unknown]
  - Diarrhoea infectious [Recovered/Resolved]
  - Anxiety [Unknown]
  - Loss of personal independence in daily activities [Unknown]
  - Gastric disorder [Unknown]

NARRATIVE: CASE EVENT DATE: 20120725
